FAERS Safety Report 5442992-8 (Version None)
Quarter: 2007Q3

REPORT INFORMATION
  Report Type: 
  Country: None (occurrence: None)
  Receive Date: 20070905
  Receipt Date: 20070827
  Transmission Date: 20080115
  Serious: Yes (Hospitalization, Other)
  Sender: FDA-Public Use
  Company Number: PHBS2007JP14386

PATIENT
  Age: 41 Year
  Sex: Female

DRUGS (3)
  1. NEORAL [Suspect]
     Indication: MYASTHENIA GRAVIS
     Dosage: 5 MG/KG/D
     Route: 048
     Dates: start: 20070501
  2. NEORAL [Suspect]
     Dosage: 3 MG/KG/D
     Route: 048
  3. STEROIDS NOS [Concomitant]
     Indication: MYASTHENIA GRAVIS
     Route: 065

REACTIONS (4)
  - CREATININE RENAL CLEARANCE DECREASED [None]
  - MYASTHENIA GRAVIS CRISIS [None]
  - RENAL DISORDER [None]
  - SURGERY [None]
